FAERS Safety Report 4591031-X (Version None)
Quarter: 2005Q1

REPORT INFORMATION
  Report Type: 
  Country: None (occurrence: None)
  Receive Date: 20050225
  Receipt Date: 20050214
  Transmission Date: 20050727
  Serious: Yes (Other)
  Sender: FDA-Public Use
  Company Number: DE-BRISTOL-MYERS SQUIBB COMPANY-12868170

PATIENT
  Sex: Female

DRUGS (3)
  1. ABILIFY [Suspect]
     Dosage: 5 MG/DAY 27-JAN-05, INCR TO 10 MG/DAY 30-JAN-05, INCR TO 15 MG/DAY 7-FEB-05
     Route: 048
     Dates: start: 20050127
  2. CLOZAPINE [Concomitant]
     Dosage: 300 MG 15-JAN-05, 200 MG 02-FEB-05, 150 MG 7-FEB-05, 100 MG 10-FEB-05
     Dates: start: 20050115
  3. BELOC-ZOK MITE [Concomitant]
     Dates: start: 20050210

REACTIONS (2)
  - CIRCULATORY COLLAPSE [None]
  - TACHYCARDIA [None]
